FAERS Safety Report 9377023 (Version 1)
Quarter: 2013Q3

REPORT INFORMATION
  Report Type: Report from Study
  Country: PL (occurrence: PL)
  Receive Date: 20130701
  Receipt Date: 20130701
  Transmission Date: 20140515
  Serious: Yes (Death, Life-Threatening, Hospitalization)
  Sender: FDA-Public Use
  Company Number: PHHO2013PL008264

PATIENT
  Age: 65 Year
  Sex: Male
  Weight: 93.5 kg

DRUGS (23)
  1. BLINDED ALISKIREN [Suspect]
     Indication: CARDIAC FAILURE
     Dosage: CODE NOT BROKEN
     Route: 048
     Dates: start: 20130114, end: 20130317
  2. BLINDED ENALAPRIL [Suspect]
     Indication: CARDIAC FAILURE
     Dosage: CODE NOT BROKEN
     Route: 048
     Dates: start: 20130114, end: 20130317
  3. BLINDED NO TREATMENT RECEIVED [Suspect]
     Indication: CARDIAC FAILURE
     Dosage: CODE NOT BROKEN
     Route: 048
     Dates: start: 20130114, end: 20130317
  4. ATROX [Concomitant]
     Indication: MYOCARDIAL ISCHAEMIA
     Dosage: 20 MG, QD
     Route: 048
     Dates: start: 201104
  5. ATROX [Concomitant]
     Indication: CARDIAC FAILURE
  6. NORVASC [Concomitant]
     Indication: MYOCARDIAL ISCHAEMIA
     Dosage: 10 MG, QD
     Route: 048
     Dates: start: 201201
  7. NORVASC [Concomitant]
     Indication: CARDIAC FAILURE
  8. POLOCARD [Concomitant]
     Indication: MYOCARDIAL ISCHAEMIA
     Dosage: 75 MG, QD
     Route: 048
     Dates: start: 200306
  9. POLOCARD [Concomitant]
     Indication: CARDIAC FAILURE
  10. WARFARIN [Concomitant]
     Indication: MYOCARDIAL ISCHAEMIA
     Dosage: 9 MG, QD
     Route: 048
     Dates: start: 20120507
  11. WARFARIN [Concomitant]
     Indication: CARDIAC FAILURE
  12. EFFOX LONG [Concomitant]
     Indication: MYOCARDIAL ISCHAEMIA
     Dosage: 50 MG, QD
     Route: 048
     Dates: start: 201204
  13. CORECTIN [Concomitant]
     Indication: MYOCARDIAL ISCHAEMIA
     Dosage: 10 MG, QD
     Route: 048
     Dates: start: 201110
  14. CORECTIN [Concomitant]
     Indication: CARDIAC FAILURE
  15. DIUVER [Concomitant]
     Indication: MYOCARDIAL ISCHAEMIA
     Dosage: 5 MG, QD
     Route: 048
     Dates: start: 201205
  16. DIUVER [Concomitant]
     Indication: CARDIAC FAILURE
  17. POLPRIL [Concomitant]
     Indication: MYOCARDIAL ISCHAEMIA
     Dosage: 10 MG, QD
     Route: 048
     Dates: start: 201204, end: 20130113
  18. POLPRIL [Concomitant]
     Indication: CARDIAC FAILURE
  19. ENARENAL [Concomitant]
     Indication: CARDIAC FAILURE
     Dosage: 20 MG, QD
     Route: 048
     Dates: start: 20130318
  20. FORADIL [Concomitant]
     Indication: CHRONIC OBSTRUCTIVE PULMONARY DISEASE
     Dosage: 12 UG, BID [2 X]
     Dates: start: 201111
  21. MIFLONIDE [Concomitant]
     Indication: CHRONIC OBSTRUCTIVE PULMONARY DISEASE
     Dosage: 400 UG, BID [2X]
     Dates: start: 201111
  22. FORMETIC [Concomitant]
     Indication: TYPE 2 DIABETES MELLITUS
     Dosage: 1000 MG, TID [3X]
     Dates: start: 201110
  23. HELICID [Concomitant]
     Indication: PROPHYLAXIS
     Dosage: 20 MG, QD
     Dates: start: 201204

REACTIONS (1)
  - Head injury [Fatal]
